FAERS Safety Report 25802418 (Version 1)
Quarter: 2025Q3

REPORT INFORMATION
  Report Type: Spontaneous
  Country: GB (occurrence: GB)
  Receive Date: 20250915
  Receipt Date: 20250915
  Transmission Date: 20251020
  Serious: Yes (Other)
  Sender: B. BRAUN MEDICAL INC.
  Company Number: GB-B. Braun Medical Inc.-GB-BBM-202503402

PATIENT
  Age: 25 Year
  Sex: Female

DRUGS (2)
  1. METRONIDAZOLE [Suspect]
     Active Substance: METRONIDAZOLE
     Indication: Pelvic inflammatory disease
  2. DOXYCYCLINE [Suspect]
     Active Substance: DOXYCYCLINE
     Indication: Pelvic inflammatory disease

REACTIONS (11)
  - Menstruation delayed [Unknown]
  - Gastrooesophageal reflux disease [Unknown]
  - Chromaturia [Not Recovered/Not Resolved]
  - Diarrhoea [Not Recovered/Not Resolved]
  - Fatigue [Not Recovered/Not Resolved]
  - Vomiting [Recovered/Resolved]
  - Oral candidiasis [Not Recovered/Not Resolved]
  - Stress [Unknown]
  - Menstrual disorder [Unknown]
  - Product use complaint [Unknown]
  - Abdominal pain upper [Unknown]

NARRATIVE: CASE EVENT DATE: 20250722
